FAERS Safety Report 7950858 (Version 13)
Quarter: 2013Q2

REPORT INFORMATION
  Report Type: Spontaneous
  Country: CA (occurrence: CA)
  Receive Date: 20110518
  Receipt Date: 20130514
  Transmission Date: 20140414
  Serious: Yes (Hospitalization, Other)
  Sender: FDA-Public Use
  Company Number: CA-ROCHE-GNE318744

PATIENT
  Age: 51 Year
  Sex: Male

DRUGS (7)
  1. XOLAIR [Suspect]
     Indication: ASTHMA
     Route: 058
     Dates: start: 20100203
  2. XOLAIR [Suspect]
     Route: 065
     Dates: start: 20130508
  3. SINGULAIR [Concomitant]
     Indication: PRODUCT USED FOR UNKNOWN INDICATION
  4. ADVAIR [Concomitant]
     Indication: PRODUCT USED FOR UNKNOWN INDICATION
  5. VENTOLIN [Concomitant]
     Indication: PRODUCT USED FOR UNKNOWN INDICATION
  6. NASONEX [Concomitant]
     Indication: PRODUCT USED FOR UNKNOWN INDICATION
  7. PREDNISONE [Concomitant]

REACTIONS (15)
  - Circulatory collapse [Unknown]
  - Pneumonia [Unknown]
  - Neoplasm [Unknown]
  - Foreign body [Recovering/Resolving]
  - Dyspnoea [Recovered/Resolved]
  - Respiratory tract congestion [Unknown]
  - Abdominal pain lower [Unknown]
  - Abdominal discomfort [Unknown]
  - Large intestine polyp [Unknown]
  - Nasopharyngitis [Unknown]
  - Increased upper airway secretion [Recovered/Resolved]
  - Malaise [Unknown]
  - Abdominal pain upper [Unknown]
  - Headache [Unknown]
  - Musculoskeletal stiffness [Unknown]
